FAERS Safety Report 5839123-9 (Version None)
Quarter: 2008Q3

REPORT INFORMATION
  Report Type: 
  Country: None (occurrence: None)
  Receive Date: 20080808
  Receipt Date: 20080731
  Transmission Date: 20090109
  Serious: Yes (Life-Threatening, Hospitalization)
  Sender: FDA-Public Use
  Company Number: GB-PFIZER INC-2008018517

PATIENT
  Sex: Female

DRUGS (2)
  1. SUTENT [Suspect]
     Route: 048
     Dates: start: 20080123, end: 20080207
  2. ANTIBIOTICS [Suspect]
     Indication: PYREXIA
     Route: 042

REACTIONS (7)
  - CONFUSIONAL STATE [None]
  - DISSEMINATED INTRAVASCULAR COAGULATION [None]
  - MYOCLONUS [None]
  - PLATELET COUNT DECREASED [None]
  - PYREXIA [None]
  - RENAL FAILURE [None]
  - URINARY TRACT INFECTION [None]
